FAERS Safety Report 7538056-X (Version None)
Quarter: 2011Q2

REPORT INFORMATION
  Report Type: 
  Country: None (occurrence: None)
  Receive Date: 20110609
  Receipt Date: 20110603
  Transmission Date: 20111010
  Serious: Yes (Other)
  Sender: FDA-Public Use
  Company Number: US-PFIZER INC-2011099998

PATIENT
  Age: 49 Year
  Sex: Male

DRUGS (3)
  1. KLONOPIN [Concomitant]
     Indication: ANXIETY
     Dosage: 0.5 MG, AS NEEDED
     Route: 048
  2. PAXIL [Concomitant]
     Indication: AFFECTIVE DISORDER
     Dosage: 40 MG, DAILY
     Route: 048
  3. GEODON [Suspect]
     Dosage: 40 MG, 2X/DAY
     Route: 048

REACTIONS (2)
  - CYSTITIS [None]
  - URINARY RETENTION [None]
